FAERS Safety Report 23552584 (Version 1)
Quarter: 2024Q1

REPORT INFORMATION
  Report Type: Spontaneous
  Country: US (occurrence: US)
  Receive Date: 20240222
  Receipt Date: 20240222
  Transmission Date: 20240410
  Serious: No
  Sender: FDA-Public Use
  Company Number: US-AMGEN-USASP2024032315

PATIENT
  Age: 61 Year
  Sex: Female

DRUGS (5)
  1. KANJINTI [Suspect]
     Active Substance: TRASTUZUMAB-ANNS
     Indication: Product used for unknown indication
     Dosage: 290 MILLIGRAM, Q3WK
     Route: 065
     Dates: start: 20240119, end: 20240209
  2. TUKYSA [Suspect]
     Active Substance: TUCATINIB
     Indication: Breast cancer female
     Dosage: UNK
     Route: 065
  3. TUKYSA [Suspect]
     Active Substance: TUCATINIB
     Dosage: UNK
     Route: 065
  4. CAPECITABINE [Suspect]
     Active Substance: CAPECITABINE
     Indication: Product used for unknown indication
     Dosage: UNK
     Route: 065
  5. LEVOTHYROXINE [Concomitant]
     Active Substance: LEVOTHYROXINE\LEVOTHYROXINE SODIUM
     Dosage: UNK

REACTIONS (12)
  - Diarrhoea [Unknown]
  - Gait inability [Unknown]
  - Aphthous ulcer [Unknown]
  - Eosinophil percentage increased [Unknown]
  - Blood bilirubin increased [Unknown]
  - Palmar-plantar erythrodysaesthesia syndrome [Unknown]
  - Lip swelling [Unknown]
  - Headache [Unknown]
  - Pain in extremity [Unknown]
  - Hypoaesthesia [Unknown]
  - Aspartate aminotransferase increased [Unknown]
  - Alanine aminotransferase increased [Unknown]

NARRATIVE: CASE EVENT DATE: 20240101
